FAERS Safety Report 7575213-0 (Version None)
Quarter: 2011Q2

REPORT INFORMATION
  Report Type: 
  Country: None (occurrence: None)
  Receive Date: 20110627
  Receipt Date: 20100116
  Transmission Date: 20111010
  Serious: Yes (Death, Hospitalization, Other)
  Sender: FDA-Public Use
  Company Number: US-BAYER-201011334NA

PATIENT
  Age: 55 Year
  Sex: Male
  Weight: 78 kg

DRUGS (47)
  1. TRASYLOL [Suspect]
     Indication: CORONARY ARTERY BYPASS
     Dosage: TEST DOSE 2ML
     Dates: start: 20071104, end: 20071104
  2. LASIX [Concomitant]
     Indication: PRODUCT USED FOR UNKNOWN INDICATION
  3. TORSEMIDE [Concomitant]
     Indication: PRODUCT USED FOR UNKNOWN INDICATION
  4. CARDIZEM LA [Concomitant]
     Dosage: 240 MG, QD
     Route: 048
  5. CARDIZEM LA [Concomitant]
     Dosage: UNK
  6. PREDNISONE [Concomitant]
     Dosage: 40 MG, QD
     Route: 048
  7. METOPROLOL TARTRATE [Concomitant]
     Dosage: 25 MG, BID
     Route: 048
  8. PEPCID [Concomitant]
     Dosage: 20MG
     Route: 042
     Dates: start: 20071104
  9. ZAROXOLYN [Concomitant]
     Indication: PRODUCT USED FOR UNKNOWN INDICATION
  10. CARDIOLITE [Concomitant]
     Dosage: 27.5 MCI
     Dates: start: 20061227
  11. LOPRESSOR [Concomitant]
     Dosage: 25 MG, UNK
     Route: 048
  12. PLATELETS [Concomitant]
     Dosage: UNK
     Dates: start: 20071104
  13. HUMALOG [Concomitant]
     Dosage: 5-15 UNITS 3 TIMES DAILY
     Dates: start: 20020101
  14. TRASYLOL [Suspect]
     Indication: LUNG TRANSPLANT
     Dosage: LOADING DOSE 200ML, THEN 50ML/HR
     Dates: start: 20071104, end: 20071104
  15. LASIX [Concomitant]
     Dosage: UNK
     Dates: start: 20071104
  16. RED BLOOD CELLS [Concomitant]
     Indication: PRODUCT USED FOR UNKNOWN INDICATION
     Dosage: UNK
     Dates: start: 20071104
  17. MOXIFLOXACIN [Concomitant]
     Dosage: 400 MG, QD
     Route: 048
     Dates: start: 20070607
  18. EFFEXOR XR [Concomitant]
     Dosage: 75 MG, QD
     Route: 048
  19. REMERON [Concomitant]
     Dosage: 45 MG, QD
     Route: 048
  20. DIGOXIN [Concomitant]
     Dosage: 125 MCG
     Route: 048
  21. INSULIN [Concomitant]
     Dosage: UNK
     Dates: start: 20071104
  22. VASOPRESSIN [Concomitant]
     Dosage: UNK
     Dates: start: 20071104
  23. PREVACID [Concomitant]
     Dosage: 40 MG, QD
     Route: 048
  24. METOPROLOL TARTRATE [Concomitant]
     Dosage: UNK
     Dates: start: 20071104
  25. FENTANYL [Concomitant]
     Dosage: UNK
     Dates: start: 20071104
  26. PROTAMINE SULFATE [Concomitant]
     Dosage: UNK
     Dates: start: 20071104
  27. THALLIUM (201 TL) [Concomitant]
     Dosage: 4.1 MCI
     Dates: start: 20061227
  28. COUMADIN [Concomitant]
     Dosage: 3 MG, QD
     Route: 048
     Dates: start: 20051106
  29. GLUCOPHAGE [Concomitant]
     Route: 048
  30. DIGOXIN [Concomitant]
     Dosage: 0.125 MG, QD
     Route: 048
  31. LANTUS [Concomitant]
     Dosage: 30 U, HS
     Dates: start: 20020101
  32. ACETYLSALICYLIC ACID SRT [Concomitant]
     Route: 048
  33. PLASMA [Concomitant]
     Dosage: UNK
     Dates: start: 20071104
  34. NITROGLYCERIN [Concomitant]
     Dosage: 0.4 AS NEEDED
     Route: 060
  35. BENADRYL [Concomitant]
     Dosage: UNK
     Dates: start: 20071104
  36. HEXTEND [Concomitant]
     Indication: PRODUCT USED FOR UNKNOWN INDICATION
  37. THALLIUM (201 TL) [Concomitant]
     Dosage: 4.1 MCI
     Dates: start: 20051209
  38. VFEND [Concomitant]
     Dosage: 200 MG, BID
     Route: 048
     Dates: start: 20070627
  39. ACETYLSALICYLIC ACID SRT [Concomitant]
     Dosage: 81 MG, QD
     Route: 048
  40. TRASYLOL [Suspect]
     Indication: AORTIC VALVE REPLACEMENT
  41. LASIX [Concomitant]
     Dosage: 20MG
     Route: 042
  42. CARDIOLITE [Concomitant]
     Dosage: 25.9 MCI
     Dates: start: 20051209
  43. LASIX [Concomitant]
     Dosage: 40 MG, BID
     Route: 048
  44. MILRINONE [Concomitant]
     Dosage: UNK
     Dates: start: 20071104
  45. METHYLPREDNISOLONE ACETATE [Concomitant]
     Dosage: 1GM IVPB
     Dates: start: 20071104
  46. HEPARIN [Concomitant]
     Dosage: UNK
     Dates: start: 20071104
  47. MORPHINE [Concomitant]
     Dosage: UNK
     Dates: start: 20071104

REACTIONS (15)
  - ANXIETY [None]
  - RENAL INJURY [None]
  - UNEVALUABLE EVENT [None]
  - CARDIAC DISORDER [None]
  - DEATH [None]
  - RENAL IMPAIRMENT [None]
  - ORGAN FAILURE [None]
  - FEAR [None]
  - RENAL FAILURE [None]
  - RENAL FAILURE ACUTE [None]
  - CEREBROVASCULAR ACCIDENT [None]
  - PAIN [None]
  - DEPRESSION [None]
  - ANHEDONIA [None]
  - INJURY [None]
